FAERS Safety Report 6147535-1 (Version None)
Quarter: 2009Q2

REPORT INFORMATION
  Report Type: 
  Country: None (occurrence: None)
  Receive Date: 20090408
  Receipt Date: 20090302
  Transmission Date: 20091009
  Serious: No
  Sender: FDA-Public Use
  Company Number: US-BAYER-200910730BCC

PATIENT
  Age: 90 Year
  Sex: Female
  Weight: 51 kg

DRUGS (6)
  1. ALEVE [Suspect]
     Indication: BACK PAIN
     Dosage: TOTAL DAILY DOSE: 880 MG  UNIT DOSE: 220 MG
     Route: 048
     Dates: start: 20090301
  2. CARDIZEM [Concomitant]
  3. BAYER 325 MG [Concomitant]
  4. ISORBIDE [Concomitant]
  5. VITAMIN TAB [Concomitant]
  6. VICODIN [Concomitant]

REACTIONS (1)
  - BACK PAIN [None]
